FAERS Safety Report 6605020-4 (Version None)
Quarter: 2010Q1

REPORT INFORMATION
  Report Type: 
  Country: None (occurrence: None)
  Receive Date: 20100226
  Receipt Date: 20100219
  Transmission Date: 20100710
  Serious: Yes (Other)
  Sender: FDA-Public Use
  Company Number: US-BRISTOL-MYERS SQUIBB COMPANY-14986939

PATIENT
  Age: 63 Year
  Sex: Male

DRUGS (2)
  1. AZACTAM [Suspect]
     Indication: MENINGITIS
     Dates: start: 20100217
  2. MAXIPIME [Suspect]

REACTIONS (1)
  - ARRHYTHMIA [None]
